FAERS Safety Report 26132155 (Version 1)
Quarter: 2025Q4

REPORT INFORMATION
  Report Type: Spontaneous
  Country: CA (occurrence: CA)
  Receive Date: 20251208
  Receipt Date: 20251208
  Transmission Date: 20260118
  Serious: Yes (Hospitalization)
  Sender: BAYER HEALTHCARE PHARMACEUTICALS INC.
  Company Number: CA-BAYER-2025A161046

PATIENT
  Age: 45 Year
  Sex: Male

DRUGS (1)
  1. GADOBUTROL [Suspect]
     Active Substance: GADOBUTROL
     Indication: Magnetic resonance imaging
     Dosage: 11.5 ML, ONCE
     Dates: start: 20251122, end: 20251122

REACTIONS (5)
  - Vomiting [None]
  - Malaise [None]
  - Throat irritation [None]
  - Vision blurred [None]
  - Syncope [None]

NARRATIVE: CASE EVENT DATE: 20251122
